FAERS Safety Report 6244158-0 (Version None)
Quarter: 2009Q2

REPORT INFORMATION
  Report Type: 
  Country: None (occurrence: None)
  Receive Date: 20090625
  Receipt Date: 20090611
  Transmission Date: 20091009
  Serious: Yes (Hospitalization, Other)
  Sender: FDA-Public Use
  Company Number: FR-RANBAXY-2009RR-24878

PATIENT
  Age: 60 Year
  Sex: Male

DRUGS (2)
  1. VERAPAMIL [Suspect]
     Dosage: 240 MG, QD
     Route: 048
  2. CLOPIDOGREL [Concomitant]
     Route: 048

REACTIONS (3)
  - INTESTINAL ISCHAEMIA [None]
  - OVERDOSE [None]
  - SUICIDE ATTEMPT [None]
